FAERS Safety Report 7035199-4 (Version None)
Quarter: 2010Q4

REPORT INFORMATION
  Report Type: 
  Country: None (occurrence: None)
  Receive Date: 20101008
  Receipt Date: 20100929
  Transmission Date: 20110411
  Serious: Yes (Hospitalization)
  Sender: FDA-Public Use
  Company Number: JP-ROCHE-718751

PATIENT
  Sex: Female
  Weight: 107 kg

DRUGS (19)
  1. TOCILIZUMAB [Suspect]
     Indication: RHEUMATOID ARTHRITIS
     Route: 041
     Dates: start: 20090430, end: 20090430
  2. TOCILIZUMAB [Suspect]
     Route: 041
     Dates: start: 20090528, end: 20090528
  3. TOCILIZUMAB [Suspect]
     Route: 041
     Dates: start: 20090625, end: 20090625
  4. TOCILIZUMAB [Suspect]
     Route: 041
     Dates: start: 20090723, end: 20090723
  5. TOCILIZUMAB [Suspect]
     Route: 041
     Dates: start: 20090910, end: 20090910
  6. TOCILIZUMAB [Suspect]
     Route: 041
     Dates: start: 20091008, end: 20091008
  7. TOCILIZUMAB [Suspect]
     Route: 041
     Dates: start: 20091105
  8. PREDNISOLONE [Suspect]
     Indication: RHEUMATOID ARTHRITIS
     Route: 048
     Dates: end: 20091018
  9. PREDNISOLONE [Suspect]
     Route: 048
     Dates: start: 20091019, end: 20091021
  10. PREDNISOLONE [Suspect]
     Route: 048
     Dates: start: 20091022
  11. PROGRAF [Concomitant]
     Route: 048
     Dates: end: 20090826
  12. PROGRAF [Concomitant]
     Route: 048
     Dates: start: 20090910
  13. FAMOTIDINE [Concomitant]
     Route: 048
  14. SELBEX [Concomitant]
     Dosage: FORM: MINUTE GRAIN
     Route: 048
  15. KETOPROFEN [Concomitant]
     Dosage: FORM: TAPE
     Route: 061
  16. STICKZENOL A [Concomitant]
     Route: 061
  17. EPATEC [Concomitant]
     Dosage: PROPER QUANTITY
     Route: 048
     Dates: end: 20090507
  18. SENNOSIDE [Concomitant]
     Route: 048
     Dates: end: 20090604
  19. MAGNESIUM OXIDE [Concomitant]
     Dosage: FORM: PERORAL AGENT
     Route: 048
     Dates: start: 20090625

REACTIONS (6)
  - ASTHMA [None]
  - CELLULITIS [None]
  - DERMAL CYST [None]
  - HYPERCHOLESTEROLAEMIA [None]
  - POLLAKIURIA [None]
  - PRURITUS [None]
